FAERS Safety Report 9474207 (Version 1)
Quarter: 2013Q3

REPORT INFORMATION
  Report Type: Report from Study
  Country: US (occurrence: US)
  Receive Date: 20130823
  Receipt Date: 20130823
  Transmission Date: 20140515
  Serious: Yes (Other)
  Sender: FDA-Public Use
  Company Number: US-ABBOTT-13P-163-1133279-00

PATIENT
  Sex: Female
  Weight: 66.28 kg

DRUGS (8)
  1. HUMIRA [Suspect]
     Indication: PSORIATIC ARTHROPATHY
  2. HUMIRA [Suspect]
     Dates: end: 2012
  3. ENBREL [Suspect]
     Indication: PSORIATIC ARTHROPATHY
     Dates: start: 2012, end: 201304
  4. ENBREL [Suspect]
     Dates: start: 201307
  5. MORPHINE SULFATE [Suspect]
     Indication: PAIN
     Dates: start: 201304, end: 201304
  6. UNNAMED MEDICATION [Concomitant]
     Indication: INFLAMMATION
  7. VITAMINS [Concomitant]
     Indication: VITAMIN SUPPLEMENTATION
  8. BLACK COHOSH [Concomitant]
     Indication: HOT FLUSH

REACTIONS (9)
  - Meniscus injury [Recovered/Resolved]
  - Meniscus injury [Not Recovered/Not Resolved]
  - Drug ineffective [Not Recovered/Not Resolved]
  - Arthralgia [Not Recovered/Not Resolved]
  - Drug ineffective [Not Recovered/Not Resolved]
  - Vomiting [Recovered/Resolved]
  - Intervertebral disc protrusion [Unknown]
  - Upper respiratory tract infection [Not Recovered/Not Resolved]
  - Cough [Not Recovered/Not Resolved]
